FAERS Safety Report 4485118-X (Version None)
Quarter: 2004Q4

REPORT INFORMATION
  Report Type: 
  Country: None (occurrence: None)
  Receive Date: 20041026
  Receipt Date: 20031024
  Transmission Date: 20050328
  Serious: No
  Sender: FDA-Public Use
  Company Number: US-BRISTOL-MYERS SQUIBB COMPANY-12418976

PATIENT
  Age: 47 Year
  Sex: Female
  Weight: 113 kg

DRUGS (5)
  1. GLUCOPHAGE XR [Suspect]
     Indication: DIABETES MELLITUS NON-INSULIN-DEPENDENT
     Route: 048
  2. LABETALOL [Concomitant]
  3. LEVOXYL [Concomitant]
  4. ZESTRIL [Concomitant]
  5. GLUCOTROL XL [Concomitant]

REACTIONS (3)
  - DIARRHOEA [None]
  - FATIGUE [None]
  - MUSCLE CRAMP [None]
